FAERS Safety Report 4682487-2 (Version None)
Quarter: 2005Q2

REPORT INFORMATION
  Report Type: 
  Country: None (occurrence: None)
  Receive Date: 20050602
  Receipt Date: 20050602
  Transmission Date: 20051028
  Serious: Yes (Hospitalization)
  Sender: FDA-Public Use
  Company Number: None

PATIENT
  Age: 51 Year
  Sex: Female

DRUGS (15)
  1. HURRICANE SPRAY [Suspect]
     Indication: LOCAL ANAESTHESIA
     Dosage: 1 SPRAY
     Dates: start: 20050503
  2. PRILOSEC [Concomitant]
  3. IMURAN [Concomitant]
  4. FOSAMAX [Concomitant]
  5. LASIX [Concomitant]
  6. PREDNISONE TAB [Concomitant]
  7. LIPITOR [Concomitant]
  8. NORVASC [Concomitant]
  9. LEXAPRO [Concomitant]
  10. ATENOLOL [Concomitant]
  11. ASPIRIN [Concomitant]
  12. NIFEREX [Concomitant]
  13. CLONIDINE [Concomitant]
  14. ARANESP [Concomitant]
  15. PHOSPHO [Concomitant]

REACTIONS (3)
  - HYPOXIA [None]
  - METHAEMOGLOBINAEMIA [None]
  - OXYGEN SATURATION DECREASED [None]
